FAERS Safety Report 6816423-7 (Version None)
Quarter: 2010Q3

REPORT INFORMATION
  Report Type: 
  Country: None (occurrence: None)
  Receive Date: 20100705
  Receipt Date: 20100629
  Transmission Date: 20110219
  Serious: Yes (Other)
  Sender: FDA-Public Use
  Company Number: FR-BRISTOL-MYERS SQUIBB COMPANY-14986277

PATIENT
  Age: 34 Year
  Sex: Male
  Weight: 72 kg

DRUGS (9)
  1. ABILIFY [Suspect]
     Indication: BIPOLAR DISORDER
     Dosage: STOPPED-07NOV08;RESTARTED ON 5DEC09-ONGOING
     Route: 048
     Dates: start: 20080916
  2. ANTIDEPRESSANT [Concomitant]
     Indication: DEPRESSION
  3. TERCIAN [Concomitant]
     Indication: DEPRESSION
     Dosage: TERICAN 4%
     Dates: start: 20080916
  4. TERCIAN [Concomitant]
     Indication: INSOMNIA
     Dosage: TERICAN 4%
     Dates: start: 20080916
  5. TERALITHE [Concomitant]
  6. ANAFRANIL [Concomitant]
     Indication: DEPRESSION
     Dates: start: 20080916
  7. STABLON [Concomitant]
     Indication: DEPRESSION
     Dosage: 1 DF=75(UNITS NOT SPECIFIED)
     Dates: start: 20080916
  8. LYSANXIA [Concomitant]
     Indication: ANXIETY
     Dosage: 1DF=4 TABLETS
     Dates: start: 20080916
  9. NOCTAMIDE [Concomitant]
     Indication: INSOMNIA
     Dosage: 1DF=2 TABS
     Dates: start: 20080916

REACTIONS (1)
  - HYPOMANIA [None]
